FAERS Safety Report 8835725 (Version 1)
Quarter: 2012Q4

REPORT INFORMATION
  Report Type: 
  Country: FR (occurrence: FR)
  Receive Date: 20121011
  Receipt Date: 20121011
  Transmission Date: 20130627
  Serious: Yes (Other)
  Sender: FDA-Public Use
  Company Number: FR-009507513-1210FRA004933

PATIENT
  Age: 50 Year
  Sex: Male

DRUGS (4)
  1. ISENTRESS [Suspect]
     Indication: HIV INFECTION CDC CATEGORY C3
     Dosage: UNK
     Route: 048
     Dates: start: 20080915, end: 20120620
  2. TRUVADA [Concomitant]
     Indication: HIV INFECTION CDC CATEGORY C3
     Dosage: UNK
     Dates: start: 20080915
  3. VIRAMUNE [Concomitant]
     Indication: HIV INFECTION CDC CATEGORY C3
     Dosage: UNK
     Route: 048
     Dates: start: 20120915
  4. CELSENTRI [Concomitant]
     Dosage: UNK
     Route: 048
     Dates: start: 20120620

REACTIONS (2)
  - Major depression [Recovered/Resolved]
  - Dependence [Recovered/Resolved]
